FAERS Safety Report 9351451 (Version 1)
Quarter: 2013Q2

REPORT INFORMATION
  Report Type: Spontaneous
  Country: US (occurrence: US)
  Receive Date: 20130617
  Receipt Date: 20130617
  Transmission Date: 20140414
  Serious: Yes (Other)
  Sender: FDA-Public Use
  Company Number: US-WATSON-2013-10279

PATIENT
  Sex: Female

DRUGS (1)
  1. MINOCYCLINE HCL (WATSON LABORATORIES) [Suspect]
     Indication: ACNE
     Dosage: UNK
     Route: 065

REACTIONS (5)
  - Benign intracranial hypertension [Unknown]
  - Visual impairment [Unknown]
  - Headache [Unknown]
  - Optic atrophy [Unknown]
  - Blindness unilateral [Unknown]
